FAERS Safety Report 23232645 (Version 2)
Quarter: 2023Q4

REPORT INFORMATION
  Report Type: Spontaneous
  Country: CN (occurrence: CN)
  Receive Date: 20231128
  Receipt Date: 20231206
  Transmission Date: 20240109
  Serious: Yes (Life-Threatening)
  Sender: FDA-Public Use
  Company Number: CN-SHANGHAI JUNSHI BIOSCIENCES CO., LTD.-CN2023008564

PATIENT

DRUGS (9)
  1. TORIPALIMAB [Suspect]
     Active Substance: TORIPALIMAB
     Indication: Oesophageal carcinoma
     Dosage: 240 MG
     Route: 041
     Dates: start: 20231012, end: 20231012
  2. TORIPALIMAB [Suspect]
     Active Substance: TORIPALIMAB
     Dosage: 240 MG
     Route: 041
     Dates: start: 20231102, end: 20231102
  3. TORIPALIMAB [Suspect]
     Active Substance: TORIPALIMAB
     Dosage: 240 MG
     Route: 041
     Dates: start: 20231113, end: 20231113
  4. NEDAPLATIN [Suspect]
     Active Substance: NEDAPLATIN
     Indication: Oesophageal carcinoma
     Dosage: 130 MG
     Route: 041
     Dates: start: 20231012, end: 20231102
  5. NEDAPLATIN [Suspect]
     Active Substance: NEDAPLATIN
     Dosage: 130 MG
     Route: 041
     Dates: start: 20231102, end: 20231102
  6. NEDAPLATIN [Suspect]
     Active Substance: NEDAPLATIN
     Dosage: 130 MG
     Route: 041
     Dates: start: 20231113, end: 20231113
  7. PACLITAXEL [Suspect]
     Active Substance: PACLITAXEL
     Indication: Oesophageal carcinoma
     Dosage: 400 MG
     Route: 041
     Dates: start: 20231012, end: 20231012
  8. PACLITAXEL [Suspect]
     Active Substance: PACLITAXEL
     Dosage: 400 MG
     Route: 041
     Dates: start: 20231102, end: 20231102
  9. PACLITAXEL [Suspect]
     Active Substance: PACLITAXEL
     Dosage: 400 MG
     Route: 041
     Dates: start: 20231113, end: 20231113

REACTIONS (4)
  - White blood cell count decreased [Recovering/Resolving]
  - Neutrophil count decreased [Recovering/Resolving]
  - Myelosuppression [Recovering/Resolving]
  - Off label use [Unknown]

NARRATIVE: CASE EVENT DATE: 20231024
